FAERS Safety Report 15292642 (Version 2)
Quarter: 2024Q2

REPORT INFORMATION
  Report Type: Spontaneous
  Country: DE (occurrence: DE)
  Receive Date: 20180819
  Receipt Date: 20240417
  Transmission Date: 20240716
  Serious: Yes (Life-Threatening, Hospitalization, Other)
  Sender: FDA-Public Use
  Company Number: DE-EMA-DD-20180726-NGEVHPROD-113844

PATIENT
  Age: 21 Year
  Sex: Female

DRUGS (10)
  1. FLUOXETINE [Suspect]
     Active Substance: FLUOXETINE HYDROCHLORIDE
     Indication: Product used for unknown indication
     Dosage: 760 MG, TOTAL
     Route: 065
  2. FLUOXETINE [Suspect]
     Active Substance: FLUOXETINE HYDROCHLORIDE
     Indication: Product used for unknown indication
     Dosage: 1DF=20-30 TABLETS.FLUOXETINE 40
     Route: 065
  3. LAMICTAL [Suspect]
     Active Substance: LAMOTRIGINE
     Indication: Product used for unknown indication
     Dosage: DOSAGE TEXT: 1900 MG, TOTAL
     Route: 065
  4. LAMICTAL [Suspect]
     Active Substance: LAMOTRIGINE
     Indication: Product used for unknown indication
     Dosage: 1DF=20-30 TABLETS.LAMICTAL 100
     Route: 065
  5. SEROQUEL [Suspect]
     Active Substance: QUETIAPINE FUMARATE
     Indication: Product used for unknown indication
     Dosage: 2700 MG, UNK
     Route: 065
     Dates: start: 20110608
  6. ABILIFY [Suspect]
     Active Substance: ARIPIPRAZOLE
     Indication: Product used for unknown indication
     Dosage: TIME INTERVAL: TOTAL
     Route: 065
     Dates: start: 20110117, end: 20110716
  7. VALPROIC ACID [Suspect]
     Active Substance: VALPROIC ACID
     Indication: Product used for unknown indication
     Dosage: DOSAGE TEXT: 5000 MG, TOTAL
     Route: 065
     Dates: start: 20110608
  8. AMOXICILLIN [Suspect]
     Active Substance: AMOXICILLIN
     Indication: Product used for unknown indication
     Dosage: AMOXICILLIN TRIHYDRATES, DOSAGE TEXT: 20000 MG, TOTAL
     Route: 065
  9. LITHIUM [Suspect]
     Active Substance: LITHIUM
     Indication: Product used for unknown indication
     Dosage: TIME INTERVAL: TOTAL
     Route: 065
     Dates: start: 20110608
  10. LEVOMEPROMAZINE [Suspect]
     Active Substance: LEVOMEPROMAZINE
     Indication: Product used for unknown indication
     Dosage: DOSAGE TEXT: 9 TABS
     Route: 048
     Dates: start: 20110608

REACTIONS (10)
  - Seizure [Recovered/Resolved]
  - Somnolence [Unknown]
  - Intentional overdose [Recovered/Resolved]
  - Tachycardia [Unknown]
  - Vomiting [Recovered/Resolved]
  - Overdose [Unknown]
  - Hypotension [Unknown]
  - Suicide attempt [Unknown]
  - Sopor [Unknown]
  - Depressed level of consciousness [Recovered/Resolved]

NARRATIVE: CASE EVENT DATE: 20110608
